FAERS Safety Report 18924265 (Version 1)
Quarter: 2021Q1

REPORT INFORMATION
  Report Type: Spontaneous
  Country: CA (occurrence: CA)
  Receive Date: 20210222
  Receipt Date: 20210222
  Transmission Date: 20210420
  Serious: Yes (Other)
  Sender: FDA-Public Use
  Company Number: CA-PFIZER INC-2021170716

PATIENT
  Age: 79 Year
  Sex: Male

DRUGS (3)
  1. TECTA [Suspect]
     Active Substance: PANTOPRAZOLE MAGNESIUM
     Indication: HIATUS HERNIA
     Dosage: 40 MILLIGRAM, QD
     Route: 048
  2. TECTA [Suspect]
     Active Substance: PANTOPRAZOLE MAGNESIUM
     Indication: ABDOMINAL DISCOMFORT
  3. SPECTRUM [CEFTAZIDIME] [Concomitant]
     Dosage: UNK

REACTIONS (12)
  - Dizziness [Recovered/Resolved]
  - Hallucination [Recovered/Resolved]
  - Muscle spasms [Recovered/Resolved]
  - Chest pain [Recovered/Resolved]
  - Sleep disorder [Recovered/Resolved]
  - Heart rate irregular [Recovered/Resolved]
  - Night sweats [Recovered/Resolved]
  - Weight decreased [Recovered/Resolved]
  - Dyspnoea [Recovered/Resolved]
  - Glossitis [Recovered/Resolved]
  - Nightmare [Recovered/Resolved]
  - Throat irritation [Recovered/Resolved]
